FAERS Safety Report 6847299-X (Version None)
Quarter: 2010Q3

REPORT INFORMATION
  Report Type: 
  Country: None (occurrence: None)
  Receive Date: 20100713
  Receipt Date: 20100625
  Transmission Date: 20110219
  Serious: Yes (Other)
  Sender: FDA-Public Use
  Company Number: 1000014956

PATIENT
  Age: 43 Year
  Sex: Female

DRUGS (2)
  1. ESCITALOPRAM ORAL SOLUTION (ESCITALOPRAM OXALATE) (SOLUTION) [Suspect]
     Indication: ANXIETY
     Dosage: 13 GTT (13 GTT, 1 IN 1 D), ORAL
     Route: 048
     Dates: start: 20100320, end: 20100521
  2. DELORAZEPAM [Concomitant]

REACTIONS (1)
  - VAGINAL HAEMORRHAGE [None]
